FAERS Safety Report 13390985 (Version 1)
Quarter: 2017Q1

REPORT INFORMATION
  Report Type: Spontaneous
  Country: US (occurrence: US)
  Receive Date: 20170331
  Receipt Date: 20170331
  Transmission Date: 20170429
  Serious: No
  Sender: FDA-Public Use
  Company Number: US-IMPAX LABORATORIES, INC-2016-IPXL-02086

PATIENT
  Sex: Female
  Weight: 44.49 kg

DRUGS (1)
  1. ALENDRONATE SODIUM IR [Suspect]
     Active Substance: ALENDRONATE SODIUM
     Indication: BONE DISORDER
     Route: 065

REACTIONS (4)
  - Memory impairment [Unknown]
  - Nasopharyngitis [Unknown]
  - Drug dose omission [Unknown]
  - Body height decreased [Unknown]
